FAERS Safety Report 7166391-6 (Version None)
Quarter: 2010Q4

REPORT INFORMATION
  Report Type: 
  Country: None (occurrence: None)
  Receive Date: 20101216
  Receipt Date: 20101019
  Transmission Date: 20110411
  Serious: No
  Sender: FDA-Public Use
  Company Number: US-ABBOTT-10P-163-0680300-00

PATIENT
  Age: 64 Year
  Sex: Male

DRUGS (3)
  1. TRILIPIX [Suspect]
     Indication: PRODUCT USED FOR UNKNOWN INDICATION
     Route: 048
  2. TRILIPIX [Suspect]
     Dosage: 3 TO 4 MONTHS (NO EVENTS) INCREASED AND TRANSITIONED TO 135MG AND ON IT 6 TO 8 WKS
     Route: 048
  3. UNKNOWN STATIN MEDICATION [Suspect]
     Indication: PRODUCT USED FOR UNKNOWN INDICATION

REACTIONS (1)
  - BLOOD CREATININE INCREASED [None]
